FAERS Safety Report 14859977 (Version 1)
Quarter: 2018Q2

REPORT INFORMATION
  Report Type: Report from Study
  Country: US (occurrence: HU)
  Receive Date: 20180508
  Receipt Date: 20180508
  Transmission Date: 20180711
  Serious: Yes (Hospitalization, Disabling)
  Sender: FDA-Public Use
  Company Number: US-SUNOVION-2018SUN001840

PATIENT

DRUGS (1)
  1. INDACATEROL AND GLYCOPYRROLATE [Suspect]
     Active Substance: GLYCOPYRROLATE\INDACATEROL MALEATE
     Indication: CHRONIC OBSTRUCTIVE PULMONARY DISEASE
     Dosage: UNK
     Route: 065

REACTIONS (5)
  - Cardiac disorder [Unknown]
  - Productive cough [Not Recovered/Not Resolved]
  - Respiratory tract irritation [Unknown]
  - Asthenia [Not Recovered/Not Resolved]
  - Hypoacusis [Not Recovered/Not Resolved]
